FAERS Safety Report 7224728-3 (Version None)
Quarter: 2011Q1

REPORT INFORMATION
  Report Type: 
  Country: None (occurrence: None)
  Receive Date: 20110113
  Receipt Date: 20110106
  Transmission Date: 20110831
  Serious: Yes (Death)
  Sender: FDA-Public Use
  Company Number: US-JNJFOC-20110101691

PATIENT
  Age: 74 Year
  Sex: Female

DRUGS (5)
  1. DIPHENHYDRAMINE [Suspect]
     Route: 048
  2. ACETAMINOPHEN [Suspect]
  3. HYDROCODONE [Suspect]
     Indication: SUICIDE ATTEMPT
  4. DIPHENHYDRAMINE [Suspect]
     Indication: SUICIDE ATTEMPT
     Route: 048
  5. ACETAMINOPHEN [Suspect]
     Indication: SUICIDE ATTEMPT

REACTIONS (1)
  - TOXICITY TO VARIOUS AGENTS [None]
